FAERS Safety Report 7436672-7 (Version None)
Quarter: 2011Q2

REPORT INFORMATION
  Report Type: 
  Country: None (occurrence: None)
  Receive Date: 20110426
  Receipt Date: 20110412
  Transmission Date: 20111010
  Serious: No
  Sender: FDA-Public Use
  Company Number: PHHY2011IT31698

PATIENT
  Sex: Female

DRUGS (1)
  1. TASIGNA [Suspect]

REACTIONS (1)
  - DRUG EXPOSURE DURING PREGNANCY [None]
